FAERS Safety Report 8206427-4 (Version None)
Quarter: 2012Q1

REPORT INFORMATION
  Report Type: 
  Country: None (occurrence: None)
  Receive Date: 20120313
  Receipt Date: 20120309
  Transmission Date: 20120608
  Serious: Yes (Other)
  Sender: FDA-Public Use
  Company Number: PHHY2012DE021001

PATIENT
  Sex: Female

DRUGS (1)
  1. GLEEVEC [Suspect]
     Indication: NEUROENDOCRINE TUMOUR
     Dosage: 400MG/D

REACTIONS (1)
  - METASTASES TO CENTRAL NERVOUS SYSTEM [None]
